FAERS Safety Report 25719440 (Version 1)
Quarter: 2025Q3

REPORT INFORMATION
  Report Type: Spontaneous
  Country: CN (occurrence: CN)
  Receive Date: 20250824
  Receipt Date: 20250824
  Transmission Date: 20251020
  Serious: Yes (Other)
  Sender: ALEXION PHARMACEUTICALS
  Company Number: CN-ASTRAZENECA-202508CHN016051CN

PATIENT
  Age: 65 Year
  Sex: Female
  Weight: 68 kg

DRUGS (1)
  1. DAPAGLIFLOZIN [Suspect]
     Active Substance: DAPAGLIFLOZIN
     Indication: Hypoglycaemia
     Dosage: 5.000 MILLIGRAM, QD
     Dates: start: 20250810, end: 20250815

REACTIONS (3)
  - Micturition urgency [Recovering/Resolving]
  - Urinary retention [Recovering/Resolving]
  - Urethritis [Unknown]

NARRATIVE: CASE EVENT DATE: 20250815
